FAERS Safety Report 9665754 (Version 1)
Quarter: 2013Q4

REPORT INFORMATION
  Report Type: Spontaneous
  Country: US (occurrence: None)
  Receive Date: 20131031
  Receipt Date: 20131031
  Transmission Date: 20140711
  Serious: No
  Sender: FDA-Public Use
  Company Number: None

PATIENT
  Age: 50 Year
  Sex: Female
  Weight: 87.54 kg

DRUGS (2)
  1. VENLAFAXINE HCL ER CAPS 75MG AUROBINDO [Suspect]
     Indication: DEPRESSION
     Dates: start: 20131025, end: 20131030
  2. VENLAFAXINE HCL ER CAPS 75MG AUROBINDO [Suspect]
     Indication: ANXIETY
     Dates: start: 20131025, end: 20131030

REACTIONS (9)
  - Mood altered [None]
  - Depression [None]
  - Crying [None]
  - Insomnia [None]
  - Anxiety [None]
  - Suicidal ideation [None]
  - Drug withdrawal syndrome [None]
  - Drug ineffective [None]
  - Product substitution issue [None]
